FAERS Safety Report 9885768 (Version 1)
Quarter: 2014Q1

REPORT INFORMATION
  Report Type: Spontaneous
  Country: US (occurrence: None)
  Receive Date: 20140205
  Receipt Date: 20140205
  Transmission Date: 20141002
  Serious: Yes (Death)
  Sender: FDA-Public Use
  Company Number: IMP_07169_2014

PATIENT
  Age: 47 Year
  Sex: Female

DRUGS (7)
  1. BUPROPION [Suspect]
     Indication: PRODUCT USED FOR UNKNOWN INDICATION
     Dosage: (DF ORAL) UNKNOWN UNTIL NOT CONTINUING??
  2. ALPRAZOLAM [Suspect]
     Indication: PRODUCT USED FOR UNKNOWN INDICATION
     Dosage: (DF ORAL) UNKNOWN UNTIL NOT CONTINUING??
  3. AMLODIPINE [Suspect]
     Indication: PRODUCT USED FOR UNKNOWN INDICATION
     Dosage: (DF ORAL) UNKNOWN UNTIL NOT CONTINUING??
  4. CARVEDIOL [Suspect]
     Indication: PRODUCT USED FOR UNKNOWN INDICATION
     Dosage: (DF ORAL) UNKNOWN UNTIL NOT CONTINUING??
  5. ACETAMINOPHEN W/HYDROCODONE [Suspect]
     Indication: PRODUCT USED FOR UNKNOWN INDICATION
     Dosage: (DF ORAL) UNKNOWN UNTIL NOT CONTINUING?
  6. CITALOPRAM [Suspect]
     Indication: PRODUCT USED FOR UNKNOWN INDICATION
     Dosage: (DF ORAL) UNKNOWN UNTIL NOT CONTINUING??
  7. ESCITALOPRAM [Suspect]
     Indication: PRODUCT USED FOR UNKNOWN INDICATION
     Dosage: (DF ORAL) UNKNOWN UNTIL NOT CONTINUING??

REACTIONS (3)
  - Respiratory arrest [None]
  - Completed suicide [None]
  - Cardiac arrest [None]
